FAERS Safety Report 24860664 (Version 1)
Quarter: 2025Q1

REPORT INFORMATION
  Report Type: Spontaneous
  Country: CN (occurrence: CN)
  Receive Date: 20250120
  Receipt Date: 20250120
  Transmission Date: 20250408
  Serious: Yes (Life-Threatening)
  Sender: BEIGENE
  Company Number: CN-BEIGENE-BGN-2025-000793

PATIENT
  Age: 75 Year

DRUGS (11)
  1. TISLELIZUMAB [Suspect]
     Active Substance: TISLELIZUMAB
     Indication: Oesophageal squamous cell carcinoma
     Route: 041
  2. TISLELIZUMAB [Suspect]
     Active Substance: TISLELIZUMAB
     Indication: Metastases to lymph nodes
  3. TISLELIZUMAB [Suspect]
     Active Substance: TISLELIZUMAB
     Indication: Metastases to the mediastinum
  4. TISLELIZUMAB [Suspect]
     Active Substance: TISLELIZUMAB
     Route: 041
  5. CISPLATIN [Suspect]
     Active Substance: CISPLATIN
     Indication: Oesophageal squamous cell carcinoma
     Route: 041
  6. CISPLATIN [Suspect]
     Active Substance: CISPLATIN
     Indication: Metastases to lymph nodes
  7. CISPLATIN [Suspect]
     Active Substance: CISPLATIN
     Indication: Metastases to the mediastinum
  8. CISPLATIN [Suspect]
     Active Substance: CISPLATIN
     Route: 041
  9. CAPECITABINE [Suspect]
     Active Substance: CAPECITABINE
     Indication: Oesophageal squamous cell carcinoma
     Dosage: 1.5 GRAM, BID
  10. CAPECITABINE [Suspect]
     Active Substance: CAPECITABINE
     Indication: Metastases to lymph nodes
     Dosage: 1.5 GRAM, BID
     Route: 048
  11. CAPECITABINE [Suspect]
     Active Substance: CAPECITABINE
     Indication: Metastases to the mediastinum

REACTIONS (1)
  - Myelosuppression [Unknown]
